FAERS Safety Report 19393295 (Version 6)
Quarter: 2022Q2

REPORT INFORMATION
  Report Type: Report from Study
  Country: US (occurrence: None)
  Receive Date: 20210609
  Receipt Date: 20220505
  Transmission Date: 20220720
  Serious: Yes (Hospitalization)
  Sender: FDA-Public Use
  Company Number: US-ROCHE-2840288

PATIENT
  Age: 69 Year
  Sex: Female
  Weight: 93.2 kg

DRUGS (31)
  1. MOSUNETUZUMAB [Suspect]
     Active Substance: MOSUNETUZUMAB
     Indication: B-cell lymphoma
     Dosage: DOSE LAST STUDY DRUG ADMINISTRATION PRIOR TO SAE: 30MG ON 18/MAY/2021
     Route: 042
     Dates: start: 20210406
  2. POLATUZUMAB VEDOTIN [Suspect]
     Active Substance: POLATUZUMAB VEDOTIN
     Indication: B-cell lymphoma
     Dosage: DATE OF MOST RECENT DOSE (176 MG) OF STUDY DRUG PRIOR TO SAE : 18/MAY/2021
     Route: 042
     Dates: start: 20210406
  3. CYCLOPHOSPHAMIDE [Suspect]
     Active Substance: CYCLOPHOSPHAMIDE
     Indication: B-cell lymphoma
     Dosage: DATE OF MOST RECENT DOSE (1612.5 MG) OF STUDY DRUG PRIOR TO SAE : 18/MAY/2021
     Route: 042
     Dates: start: 20210406
  4. DOXORUBICIN [Suspect]
     Active Substance: DOXORUBICIN
     Indication: B-cell lymphoma
     Dosage: DATE OF MOST RECENT DOSE (108 MG) OF STUDY DRUG PRIOR TO SAE : 18/MAY/2021
     Route: 042
     Dates: start: 20210406
  5. PREDNISOLONE [Suspect]
     Active Substance: PREDNISOLONE
     Indication: B-cell lymphoma
     Dosage: DATE OF MOST RECENT DOSE (100 MG) OF STUDY DRUG PRIOR TO SAE : 22/MAY/2021
     Route: 048
     Dates: start: 20210406
  6. POLYETHYLENE GLYCOL ELECTROLYTES (IV) [Concomitant]
     Route: 048
     Dates: start: 20210501
  7. AMITRIPTYLINE [Concomitant]
     Active Substance: AMITRIPTYLINE
     Route: 048
     Dates: start: 2011
  8. ATORVASTATIN [Concomitant]
     Active Substance: ATORVASTATIN
     Route: 048
     Dates: start: 2011
  9. VALACYCLOVIR [Concomitant]
     Active Substance: VALACYCLOVIR HYDROCHLORIDE
     Route: 048
     Dates: start: 20210407
  10. PANTOPRAZOLE [Concomitant]
     Active Substance: PANTOPRAZOLE
     Route: 048
     Dates: start: 20210407
  11. DIPHENHYDRAMINE [Concomitant]
     Active Substance: DIPHENHYDRAMINE
     Route: 042
     Dates: start: 20210427, end: 20210427
  12. DIPHENHYDRAMINE [Concomitant]
     Active Substance: DIPHENHYDRAMINE
     Route: 042
     Dates: start: 20210518, end: 20210518
  13. ACETAMINOPHEN [Concomitant]
     Active Substance: ACETAMINOPHEN
     Route: 048
     Dates: start: 20210427, end: 20210427
  14. ACETAMINOPHEN [Concomitant]
     Active Substance: ACETAMINOPHEN
     Route: 048
     Dates: start: 20210518, end: 20210518
  15. ONDANSETRON [Concomitant]
     Active Substance: ONDANSETRON
     Route: 048
     Dates: start: 20210407
  16. ONDANSETRON [Concomitant]
     Active Substance: ONDANSETRON
     Route: 048
     Dates: start: 20210427, end: 20210427
  17. ONDANSETRON [Concomitant]
     Active Substance: ONDANSETRON
     Route: 042
     Dates: start: 20210518, end: 20210518
  18. PEGFILGRASTIM [Concomitant]
     Active Substance: PEGFILGRASTIM
     Route: 058
     Dates: start: 20210427, end: 20210427
  19. PEGFILGRASTIM [Concomitant]
     Active Substance: PEGFILGRASTIM
     Route: 058
     Dates: start: 20210518, end: 20210518
  20. POTASSIUM CHLORIDE [Concomitant]
     Active Substance: POTASSIUM CHLORIDE
     Route: 042
     Dates: start: 20210528, end: 20210528
  21. POTASSIUM;SODIUM PHOSPHATE [Concomitant]
     Route: 048
     Dates: start: 20210427, end: 20210427
  22. POTASSIUM;SODIUM PHOSPHATE [Concomitant]
     Route: 048
     Dates: start: 20210518, end: 20210518
  23. POTASSIUM;SODIUM PHOSPHATE [Concomitant]
     Route: 048
     Dates: start: 20210527, end: 20210527
  24. DOCUSATE\SENNOSIDES [Concomitant]
     Active Substance: DOCUSATE\SENNOSIDES
     Route: 048
     Dates: start: 20210405
  25. .ALPHA.-TOCOPHEROL [Concomitant]
     Active Substance: .ALPHA.-TOCOPHEROL
     Route: 048
  26. CYANOCOBALAMIN [Concomitant]
     Active Substance: CYANOCOBALAMIN
     Route: 048
  27. CHOLECALCIFEROL [Concomitant]
     Active Substance: CHOLECALCIFEROL
     Route: 048
  28. ASCORBIC ACID [Concomitant]
     Active Substance: ASCORBIC ACID
     Route: 048
  29. LUTEIN-ZEAXANTHIN [Concomitant]
     Route: 048
  30. HUMAN RED BLOOD CELL [Concomitant]
     Active Substance: HUMAN RED BLOOD CELL
     Dosage: 1 U
     Route: 042
     Dates: start: 20210527, end: 20210527
  31. SODIUM CHLORIDE [Concomitant]
     Active Substance: SODIUM CHLORIDE
     Route: 042
     Dates: start: 20210527, end: 20210527

REACTIONS (1)
  - Syncope [Recovered/Resolved]

NARRATIVE: CASE EVENT DATE: 20210527
